FAERS Safety Report 18260713 (Version 1)
Quarter: 2020Q3

REPORT INFORMATION
  Report Type: Spontaneous
  Country: CN (occurrence: CN)
  Receive Date: 20200914
  Receipt Date: 20200914
  Transmission Date: 20201103
  Serious: Yes (Life-Threatening)
  Sender: FDA-Public Use
  Company Number: CN-PFIZER INC-2020351697

PATIENT
  Age: 40 Year
  Sex: Female
  Weight: 76 kg

DRUGS (2)
  1. STERILE WATER [Concomitant]
     Active Substance: WATER
     Indication: VEHICLE SOLUTION USE
     Dosage: 80 ML, SINGLE (ONCE)
     Dates: start: 20200805, end: 20200805
  2. PHARMORUBICIN [Suspect]
     Active Substance: EPIRUBICIN
     Indication: CHEMOTHERAPY
     Dosage: 190 MG, SINGLE (ONCE)
     Dates: start: 20200805, end: 20200805

REACTIONS (3)
  - Off label use [Unknown]
  - Myelosuppression [Recovering/Resolving]
  - Product preparation issue [Unknown]

NARRATIVE: CASE EVENT DATE: 20200805
